FAERS Safety Report 7488665-1 (Version None)
Quarter: 2011Q2

REPORT INFORMATION
  Report Type: 
  Country: None (occurrence: None)
  Receive Date: 20110518
  Receipt Date: 20110513
  Transmission Date: 20111010
  Serious: Yes (Other)
  Sender: FDA-Public Use
  Company Number: A0927748A

PATIENT

DRUGS (1)
  1. AVANDIA [Suspect]
     Dates: start: 19990101

REACTIONS (1)
  - MYOCARDIAL INFARCTION [None]
